FAERS Safety Report 25443234 (Version 1)
Quarter: 2025Q2

REPORT INFORMATION
  Report Type: Spontaneous
  Country: SK (occurrence: SK)
  Receive Date: 20250617
  Receipt Date: 20250617
  Transmission Date: 20250717
  Serious: Yes (Other)
  Sender: AMGEN
  Company Number: SK-ABBVIE-6308145

PATIENT
  Age: 24 Year
  Sex: Male

DRUGS (1)
  1. ADALIMUMAB [Suspect]
     Active Substance: ADALIMUMAB
     Indication: Hidradenitis
     Dosage: 40 MILLIGRAM, QWK
     Route: 058
     Dates: start: 201607

REACTIONS (6)
  - Colitis ulcerative [Unknown]
  - Inflammatory marker increased [Unknown]
  - Nodule [Unknown]
  - Skin disorder [Unknown]
  - Fistula discharge [Unknown]
  - Local reaction [Unknown]

NARRATIVE: CASE EVENT DATE: 20160701
